FAERS Safety Report 23829739 (Version 2)
Quarter: 2024Q2

REPORT INFORMATION
  Report Type: Spontaneous
  Country: ES (occurrence: ES)
  Receive Date: 20240508
  Receipt Date: 20240517
  Transmission Date: 20240716
  Serious: Yes (Death, Other)
  Sender: FDA-Public Use
  Company Number: ES-ASTELLAS-2024US013278

PATIENT
  Age: 81 Year
  Sex: Male

DRUGS (2)
  1. GILTERITINIB [Suspect]
     Active Substance: GILTERITINIB
     Indication: Acute myeloid leukaemia recurrent
     Route: 065
     Dates: end: 20240429
  2. GILTERITINIB [Suspect]
     Active Substance: GILTERITINIB
     Indication: FLT3 gene mutation

REACTIONS (6)
  - Craniocerebral injury [Fatal]
  - Traumatic haemorrhage [Fatal]
  - Fall [Fatal]
  - Cytopenia [Unknown]
  - Underdose [Unknown]
  - Off label use [Unknown]
